FAERS Safety Report 5420435-8 (Version None)
Quarter: 2007Q3

REPORT INFORMATION
  Report Type: 
  Country: None (occurrence: None)
  Receive Date: 20070816
  Receipt Date: 20070731
  Transmission Date: 20080115
  Serious: Yes (Hospitalization)
  Sender: FDA-Public Use
  Company Number: 8025798

PATIENT
  Weight: 2.66 kg

DRUGS (7)
  1. KEPPRA [Suspect]
     Indication: EPILEPSY
     Dosage: 2000 MG /D TRP
     Route: 064
     Dates: start: 20070620, end: 20070702
  2. KEPPRA [Suspect]
     Indication: EPILEPSY
     Dosage: 1500 MG /D TRP
     Route: 064
     Dates: start: 20070703, end: 20070710
  3. KEPPRA [Suspect]
     Indication: EPILEPSY
     Dosage: 3000 MG /D TRP
     Route: 064
     Dates: start: 20070711, end: 20070722
  4. FOLIC ACID [Concomitant]
  5. PRENATAL VITAMINS [Concomitant]
  6. RANITIDINE [Concomitant]
  7. PHENERGAN HCL [Concomitant]

REACTIONS (4)
  - DRUG EXPOSURE DURING PREGNANCY [None]
  - PREMATURE BABY [None]
  - RESPIRATORY DISORDER NEONATAL [None]
  - SMALL FOR DATES BABY [None]
